FAERS Safety Report 6238943-9 (Version None)
Quarter: 2009Q2

REPORT INFORMATION
  Report Type: 
  Country: None (occurrence: None)
  Receive Date: 20090622
  Receipt Date: 20090615
  Transmission Date: 20091009
  Serious: Yes (Hospitalization, Other)
  Sender: FDA-Public Use
  Company Number: JP-ELI_LILLY_AND_COMPANY-JP200905005126

PATIENT
  Sex: Male
  Weight: 59 kg

DRUGS (9)
  1. GEMZAR [Suspect]
     Indication: PANCREATIC CARCINOMA STAGE IV
     Dosage: 1500 MG, OTHER
     Route: 042
     Dates: start: 20080501, end: 20080601
  2. GEMZAR [Suspect]
     Dosage: UNK, UNKNOWN
     Route: 042
     Dates: start: 20090401, end: 20090513
  3. PLETAL [Concomitant]
     Dosage: 100 MG, 2/D
     Route: 048
  4. LUPRAC [Concomitant]
     Dosage: 2 MG, DAILY (1/D)
     Route: 048
  5. DIGOSIN [Concomitant]
     Dosage: 0.125 MG, DAILY (1/D)
     Route: 065
  6. PARIET /JPN/ [Concomitant]
     Dosage: 10 MG, DAILY (1/D)
     Route: 048
  7. SIGMART [Concomitant]
     Dosage: 5 MG, 3/D
     Route: 065
  8. NEOMALLERMIN TR [Concomitant]
     Dosage: 6 MG, 2/D
     Route: 048
  9. ALOSITOL [Concomitant]
     Dosage: 100 MG, DAILY (1/D)
     Route: 048

REACTIONS (3)
  - EMPHYSEMA [None]
  - HAEMATOTOXICITY [None]
  - PULMONARY HYPERTENSION [None]
